FAERS Safety Report 20901217 (Version 6)
Quarter: 2022Q3

REPORT INFORMATION
  Report Type: Spontaneous
  Country: US (occurrence: US)
  Receive Date: 20220601
  Receipt Date: 20220714
  Transmission Date: 20221026
  Serious: Yes (Other)
  Sender: FDA-Public Use
  Company Number: US-PFIZER INC-202200760190

PATIENT
  Age: 65 Year
  Sex: Male

DRUGS (3)
  1. RETACRIT [Suspect]
     Active Substance: EPOETIN ALFA-EPBX
     Indication: Pancytopenia
     Dosage: UNK (INFUSION; INJECTED INTO HIS ARMS)
  2. RETACRIT [Suspect]
     Active Substance: EPOETIN ALFA-EPBX
     Indication: Myelodysplastic syndrome
     Dosage: 40000 IU (Q2WEEKS)
     Route: 058
     Dates: start: 20210217, end: 20220506
  3. RETACRIT [Suspect]
     Active Substance: EPOETIN ALFA-EPBX
     Indication: Anaemia

REACTIONS (3)
  - Aplasia pure red cell [Unknown]
  - Reticulocyte count decreased [Unknown]
  - Off label use [Unknown]
